FAERS Safety Report 5946982-8 (Version None)
Quarter: 2008Q4

REPORT INFORMATION
  Report Type: 
  Country: None (occurrence: None)
  Receive Date: 20081107
  Receipt Date: 20081107
  Transmission Date: 20090506
  Serious: Yes (Other)
  Sender: FDA-Public Use
  Company Number: None

PATIENT
  Age: 48 Year
  Sex: Female

DRUGS (2)
  1. LAMOTRIGINE [Suspect]
     Indication: EPILEPSY
     Dosage: 200 MG Q12 PO
     Route: 048
     Dates: start: 20080801, end: 20080801
  2. KEPPRA [Concomitant]

REACTIONS (2)
  - PRODUCT QUALITY ISSUE [None]
  - RASH [None]
